FAERS Safety Report 6390922-7 (Version None)
Quarter: 2009Q4

REPORT INFORMATION
  Report Type: 
  Country: None (occurrence: None)
  Receive Date: 20091003
  Receipt Date: 20090925
  Transmission Date: 20100525
  Serious: Yes (Hospitalization)
  Sender: FDA-Public Use
  Company Number: 2009AL006248

PATIENT
  Age: 44 Year
  Sex: Female

DRUGS (4)
  1. NIFEDIPINE [Suspect]
     Indication: PREMATURE LABOUR
     Dosage: 20 MG
  2. ALBUTEROL [Concomitant]
  3. NIFEDIPINE [Concomitant]
  4. ATOSIBAN [Concomitant]

REACTIONS (5)
  - DRUG EXPOSURE DURING PREGNANCY [None]
  - HYPOXIA [None]
  - LEFT VENTRICULAR END-DIASTOLIC PRESSURE INCREASED [None]
  - PULMONARY OEDEMA [None]
  - RESPIRATORY FAILURE [None]
